FAERS Safety Report 4330925-7 (Version None)
Quarter: 2004Q1

REPORT INFORMATION
  Report Type: 
  Country: None (occurrence: None)
  Receive Date: 20040329
  Receipt Date: 20040315
  Transmission Date: 20041129
  Serious: Yes (Other)
  Sender: FDA-Public Use
  Company Number: US-JNJFOC-20040303412

PATIENT
  Age: 66 Year
  Sex: Female
  Weight: 107.0489 kg

DRUGS (12)
  1. REMICADE [Suspect]
     Indication: RHEUMATOID ARTHRITIS
     Dosage: 300 MG, 1 IN 8 WEEK, INTRAVENOUS
     Route: 042
     Dates: start: 20030113
  2. METHOTREXATE [Concomitant]
  3. ASPIRIN [Concomitant]
  4. CALCIUM D (CALCIUM WITH VITAMIN D) [Concomitant]
  5. ALTACE [Concomitant]
  6. FUROSEMIDE [Concomitant]
  7. K-DUR 10 [Concomitant]
  8. COMBIVENT [Concomitant]
  9. PROPOXYPHENE (DEXTROPROXYPHENE) [Concomitant]
  10. FOLIC ACID [Concomitant]
  11. FLOVENT [Concomitant]
  12. ALBUTEROL [Concomitant]

REACTIONS (1)
  - PALPITATIONS [None]
